FAERS Safety Report 7844583-8 (Version None)
Quarter: 2011Q4

REPORT INFORMATION
  Report Type: 
  Country: None (occurrence: None)
  Receive Date: 20111025
  Receipt Date: 20111017
  Transmission Date: 20120403
  Serious: Yes (Hospitalization, Other)
  Sender: FDA-Public Use
  Company Number: DE-JNJFOC-20110901171

PATIENT
  Sex: Female
  Weight: 46 kg

DRUGS (8)
  1. SIMVASTATIN [Concomitant]
     Route: 048
  2. USTEKINUMAB [Suspect]
     Indication: PSORIASIS
     Route: 058
  3. DICLOFENAC POTASSIUM [Concomitant]
     Route: 048
  4. USTEKINUMAB [Suspect]
     Route: 058
     Dates: start: 20100324, end: 20101101
  5. PANTOPRAZOLE SODIUM [Concomitant]
     Route: 048
  6. FLUOXETINE HCL [Concomitant]
     Route: 048
  7. CALCIUM CARBONATE [Concomitant]
     Route: 048
  8. AMITRIPTYLINE HCL [Concomitant]
     Route: 048

REACTIONS (3)
  - PSORIASIS [None]
  - RENAL IMPAIRMENT [None]
  - ACCELERATED HYPERTENSION [None]
